FAERS Safety Report 12548679 (Version 1)
Quarter: 2016Q3

REPORT INFORMATION
  Report Type: Spontaneous
  Country: US (occurrence: US)
  Receive Date: 20160712
  Receipt Date: 20160712
  Transmission Date: 20161109
  Serious: Yes (Hospitalization, Other)
  Sender: FDA-Public Use
  Company Number: US-TEVA-657372USA

PATIENT
  Age: 55 Year
  Sex: Female

DRUGS (37)
  1. CLOTRIMAZOLE. [Concomitant]
     Active Substance: CLOTRIMAZOLE
  2. AMMONIUM LACTATE. [Concomitant]
     Active Substance: AMMONIUM LACTATE
  3. PREVACID [Concomitant]
     Active Substance: LANSOPRAZOLE
  4. FLUCONAZOLE. [Concomitant]
     Active Substance: FLUCONAZOLE
  5. FURADANTIN [Concomitant]
     Active Substance: NITROFURANTOIN
  6. Q-DRYL [Concomitant]
     Active Substance: DIPHENHYDRAMINE HYDROCHLORIDE
  7. BETAMETHASONE CLOTRIMAZOLE [Concomitant]
     Active Substance: BETAMETHASONE DIPROPIONATE\CLOTRIMAZOLE
  8. OXYCODONE [Concomitant]
     Active Substance: OXYCODONE
  9. PANTOPRAZOLE [Concomitant]
     Active Substance: PANTOPRAZOLE SODIUM
  10. MICONAZOLE. [Concomitant]
     Active Substance: MICONAZOLE
  11. METHYLPREDNISOLONE. [Concomitant]
     Active Substance: METHYLPREDNISOLONE
  12. GENERLAC [Concomitant]
     Active Substance: LACTULOSE
  13. CLONAZEPAM. [Concomitant]
     Active Substance: CLONAZEPAM
  14. SEROQUEL [Concomitant]
     Active Substance: QUETIAPINE FUMARATE
  15. SULFAMETHOXAZOLE-TRIMETHOPRIM (SMZ) [Concomitant]
     Active Substance: SULFAMETHOXAZOLE\TRIMETHOPRIM
  16. NITROFURANTOIN. [Concomitant]
     Active Substance: NITROFURANTOIN
  17. LEVOTHYROXINE. [Concomitant]
     Active Substance: LEVOTHYROXINE
  18. LORAZEPAM. [Concomitant]
     Active Substance: LORAZEPAM
  19. AMBIEN [Concomitant]
     Active Substance: ZOLPIDEM TARTRATE
  20. HYOSCYAMINE. [Concomitant]
     Active Substance: HYOSCYAMINE
  21. PHENAZOPYRIDINE. [Concomitant]
     Active Substance: PHENAZOPYRIDINE
  22. OMEPRAZOLE. [Concomitant]
     Active Substance: OMEPRAZOLE
  23. PROMETHAZINE [Concomitant]
     Active Substance: PROMETHAZINE\PROMETHAZINE HYDROCHLORIDE
  24. OXYTROL [Concomitant]
     Active Substance: OXYBUTYNIN
  25. SENNA-GEN [Concomitant]
  26. CEPHALEXIN. [Concomitant]
     Active Substance: CEPHALEXIN
  27. LAMOTRIGINE. [Suspect]
     Active Substance: LAMOTRIGINE
     Indication: SEIZURE
     Dosage: 300 MILLIGRAM DAILY;
     Route: 065
  28. PHENOBARBITAL. [Concomitant]
     Active Substance: PHENOBARBITAL
  29. ALLOPURINOL. [Concomitant]
     Active Substance: ALLOPURINOL
  30. AZITHROMYCIN ANHYDROUS. [Concomitant]
     Active Substance: AZITHROMYCIN ANHYDROUS
  31. LEVAQUIN [Concomitant]
     Active Substance: LEVOFLOXACIN
  32. CLINDAMYCIN [Concomitant]
     Active Substance: CLINDAMYCIN\CLINDAMYCIN PHOSPHATE
  33. RANITIDINE. [Concomitant]
     Active Substance: RANITIDINE
  34. AMOXICILLIN. [Concomitant]
     Active Substance: AMOXICILLIN
  35. PHENYTOIN. [Concomitant]
     Active Substance: PHENYTOIN
  36. NYSTOP [Concomitant]
     Active Substance: NYSTATIN
  37. ACETAMINOPHEN\HYDROCODONE BITARTRATE [Concomitant]
     Active Substance: ACETAMINOPHEN\HYDROCODONE BITARTRATE

REACTIONS (38)
  - Cellulitis [Unknown]
  - Erythema [Unknown]
  - Candida infection [Unknown]
  - Anal pruritus [Unknown]
  - Vulvovaginal discomfort [Unknown]
  - Herpes zoster [Unknown]
  - Rash [Unknown]
  - Pruritus [Unknown]
  - Dry skin [Unknown]
  - Vulvovaginal pruritus [Unknown]
  - Vulvovaginal discomfort [Unknown]
  - Vulvovaginal pruritus [Unknown]
  - Genital rash [Unknown]
  - Urticaria [Unknown]
  - Rash erythematous [Unknown]
  - Fungal infection [Unknown]
  - Rash pruritic [Unknown]
  - Atrophic vulvovaginitis [Unknown]
  - Cystitis [Unknown]
  - Urticaria [Unknown]
  - Dermatophytosis [Unknown]
  - Skin hyperpigmentation [Unknown]
  - Upper respiratory tract infection [Unknown]
  - Dermatitis [Unknown]
  - Skin discolouration [Unknown]
  - Candida infection [Unknown]
  - Blister [Unknown]
  - Stevens-Johnson syndrome [Unknown]
  - Perineal rash [Unknown]
  - Vaginal infection [Unknown]
  - Urinary tract infection [Unknown]
  - Skin candida [Unknown]
  - Agitation [Unknown]
  - Seizure [Unknown]
  - Abdominal tenderness [Unknown]
  - Erythema [Unknown]
  - Movement disorder [Unknown]
  - Dermatitis [Unknown]

NARRATIVE: CASE EVENT DATE: 2008
